FAERS Safety Report 17041490 (Version 1)
Quarter: 2019Q4

REPORT INFORMATION
  Report Type: Spontaneous
  Country: GB (occurrence: GB)
  Receive Date: 20191118
  Receipt Date: 20191118
  Transmission Date: 20200122
  Serious: Yes (Disabling)
  Sender: FDA-Public Use
  Company Number: GB-TEVA-2019-GB-1138187

PATIENT
  Age: 44 Year
  Sex: Female

DRUGS (6)
  1. OMALIZUMAB. [Concomitant]
     Active Substance: OMALIZUMAB
  2. RANITIDINE. [Concomitant]
     Active Substance: RANITIDINE
  3. MONTELUKAST [Suspect]
     Active Substance: MONTELUKAST SODIUM
     Indication: CHRONIC SPONTANEOUS URTICARIA
     Dosage: 10 MG
     Route: 048
     Dates: start: 201802, end: 201909
  4. FEXOFENADINE [Concomitant]
     Active Substance: FEXOFENADINE HYDROCHLORIDE
  5. HYDROXYZINE HYDROCHLORIDE. [Concomitant]
     Active Substance: HYDROXYZINE HYDROCHLORIDE
  6. CICLOSPORIN [Concomitant]
     Active Substance: CYCLOSPORINE

REACTIONS (3)
  - Tremor [Not Recovered/Not Resolved]
  - Speech disorder [Not Recovered/Not Resolved]
  - Memory impairment [Not Recovered/Not Resolved]

NARRATIVE: CASE EVENT DATE: 201812
